FAERS Safety Report 15595696 (Version 1)
Quarter: 2018Q4

REPORT INFORMATION
  Report Type: Spontaneous
  Country: TW (occurrence: TW)
  Receive Date: 20181107
  Receipt Date: 20181107
  Transmission Date: 20190205
  Serious: Yes (Death, Other)
  Sender: FDA-Public Use
  Company Number: TW-LUPIN PHARMACEUTICALS INC.-2018-07682

PATIENT
  Age: 64 Year
  Sex: Male

DRUGS (2)
  1. SIROLIMUS. [Concomitant]
     Active Substance: SIROLIMUS
     Indication: IMMUNOSUPPRESSION
     Dosage: UNK
     Route: 065
  2. RIFAMPICIN [Suspect]
     Active Substance: RIFAMPIN
     Indication: DISSEMINATED TUBERCULOSIS
     Dosage: UNK, (600 OR 300 MG) QD
     Route: 048

REACTIONS (4)
  - Acute kidney injury [Fatal]
  - Disseminated intravascular coagulation [Fatal]
  - Sepsis [Fatal]
  - Hepatotoxicity [Unknown]
